FAERS Safety Report 10820661 (Version 1)
Quarter: 2015Q1

REPORT INFORMATION
  Report Type: Report from Study
  Country: US (occurrence: None)
  Receive Date: 20150213
  Receipt Date: 20150213
  Transmission Date: 20150721
  Serious: Yes (Hospitalization, Other)
  Sender: FDA-Public Use
  Company Number: 2014BI135372

PATIENT
  Sex: Female
  Weight: 90.72 kg

DRUGS (1)
  1. TECFIDERA [Suspect]
     Active Substance: DIMETHYL FUMARATE
     Indication: PRODUCT USED FOR UNKNOWN INDICATION
     Route: 048
     Dates: start: 20141115, end: 20141123

REACTIONS (6)
  - Subarachnoid haemorrhage [None]
  - Seizure [None]
  - Cardiac arrest [None]
  - Nausea [None]
  - Diplegia [None]
  - Apparent death [None]
